FAERS Safety Report 7989247 (Version 3)
Quarter: 2015Q1

REPORT INFORMATION
  Report Type: Spontaneous
  Country: US (occurrence: US)
  Receive Date: 20110614
  Receipt Date: 20150122
  Transmission Date: 20150721
  Serious: Yes (Hospitalization)
  Sender: FDA-Public Use
  Company Number: US-BAYER-2011-049307

PATIENT
  Age: 29 Year
  Sex: Female
  Weight: 70 kg

DRUGS (2)
  1. YASMIN [Suspect]
     Active Substance: DROSPIRENONE\ETHINYL ESTRADIOL
     Dosage: UNK
     Dates: start: 20061019, end: 20090525
  2. VITAMIN B COMPLEX [Concomitant]
     Active Substance: CYANOCOBALAMIN\DEXPANTHENOL\NIACINAMIDE\PYRIDOXINE HYDROCHLORIDE\RIBOFLAVIN 5^-PHOSPHATE SODIUM\THIAMINE HYDROCHLORIDE\VITAMIN B COMPLEX
     Indication: VITAMIN SUPPLEMENTATION
     Dosage: 1 TABLET/DAILY
     Route: 048

REACTIONS (11)
  - General physical health deterioration [None]
  - Fear [None]
  - Pain [None]
  - Emotional distress [None]
  - Anxiety [None]
  - Hypoaesthesia [None]
  - Transient ischaemic attack [None]
  - VIIth nerve paralysis [None]
  - Carotid artery thrombosis [None]
  - Headache [None]
  - Injury [None]

NARRATIVE: CASE EVENT DATE: 20090525
